FAERS Safety Report 4414770-X (Version None)
Quarter: 2004Q3

REPORT INFORMATION
  Report Type: 
  Country: None (occurrence: None)
  Receive Date: 20040804
  Receipt Date: 20030908
  Transmission Date: 20050211
  Serious: No
  Sender: FDA-Public Use
  Company Number: US-BRISTOL-MYERS SQUIBB COMPANY-12377669

PATIENT
  Age: 43 Year
  Sex: Female
  Weight: 141 kg

DRUGS (3)
  1. GLUCOVANCE [Suspect]
     Indication: DIABETES MELLITUS
     Route: 048
  2. PROZAC [Concomitant]
  3. LOTENSIN [Concomitant]

REACTIONS (2)
  - FEELING HOT [None]
  - NERVOUSNESS [None]
